FAERS Safety Report 9536561 (Version 3)
Quarter: 2016Q3

REPORT INFORMATION
  Report Type: Spontaneous
  Country: JP (occurrence: JP)
  Receive Date: 20130919
  Receipt Date: 20160909
  Transmission Date: 20161109
  Serious: Yes (Life-Threatening, Hospitalization, Other)
  Sender: FDA-Public Use
  Company Number: JP-JNJFOC-20130907948

PATIENT
  Age: 3 Year
  Sex: Female
  Weight: 8.3 kg

DRUGS (5)
  1. RISPERDAL [Suspect]
     Active Substance: RISPERIDONE
     Indication: PRODUCT USED FOR UNKNOWN INDICATION
     Route: 048
     Dates: start: 20120615, end: 20130418
  2. RAMELTEON [Concomitant]
     Active Substance: RAMELTEON
     Dosage: 0.25MG/ KG
     Route: 048
     Dates: end: 20130418
  3. ROZEREM [Concomitant]
     Active Substance: RAMELTEON
     Route: 048
     Dates: end: 20130418
  4. CERCINE [Concomitant]
     Active Substance: DIAZEPAM
     Dosage: 0.2MG/KG
     Route: 048
     Dates: start: 20120831, end: 20130418
  5. MOTONALIN [Concomitant]
     Active Substance: TIZANIDINE HYDROCHLORIDE
     Indication: POSTRESUSCITATION ENCEPHALOPATHY
     Dosage: 0.04MG/KG
     Route: 048
     Dates: start: 20121110, end: 20130418

REACTIONS (8)
  - Respiratory failure [Unknown]
  - Rhabdomyolysis [Recovering/Resolving]
  - Drug administered to patient of inappropriate age [Unknown]
  - Hypophagia [None]
  - Rhinorrhoea [Unknown]
  - Infantile asthma [Unknown]
  - Wrong technique in product usage process [Unknown]
  - Choking [None]

NARRATIVE: CASE EVENT DATE: 20120615
